FAERS Safety Report 12377167 (Version 1)
Quarter: 2016Q2

REPORT INFORMATION
  Report Type: Spontaneous
  Country: US (occurrence: US)
  Receive Date: 20160517
  Receipt Date: 20160517
  Transmission Date: 20160815
  Serious: No
  Sender: FDA-Public Use
  Company Number: US-MALLINCKRODT-T201504802

PATIENT

DRUGS (1)
  1. H.P. ACTHAR [Suspect]
     Active Substance: CORTICOTROPIN
     Indication: SYSTEMIC LUPUS ERYTHEMATOSUS
     Dosage: 80 UNITS, ONCE DAILY FOR 15 DAYS
     Route: 065
     Dates: start: 20151005

REACTIONS (2)
  - Muscle spasms [Unknown]
  - Swelling face [Unknown]

NARRATIVE: CASE EVENT DATE: 201510
